FAERS Safety Report 9821841 (Version 1)
Quarter: 2014Q1

REPORT INFORMATION
  Report Type: Spontaneous
  Country: US (occurrence: US)
  Receive Date: 20140116
  Receipt Date: 20140116
  Transmission Date: 20141002
  Serious: Yes (Other)
  Sender: FDA-Public Use
  Company Number: US-TEVA-456644USA

PATIENT
  Age: 43 Year
  Sex: Female
  Weight: 69.46 kg

DRUGS (4)
  1. ESTRADIOL [Suspect]
  2. LANSOPRAZOLE [Interacting]
     Indication: DYSPEPSIA
     Dosage: 15 MILLIGRAM DAILY; 24 HR, SLOW RELEASE
     Route: 048
     Dates: start: 201201
  3. FLUCONAZOLE [Interacting]
     Indication: FUNGAL INFECTION
  4. CLINDAMYCIN [Concomitant]

REACTIONS (12)
  - Aphagia [Recovered/Resolved]
  - Drug interaction [Recovering/Resolving]
  - Fungal infection [Recovered/Resolved]
  - Mouth ulceration [Recovered/Resolved]
  - Cyst [Not Recovered/Not Resolved]
  - Weight decreased [Recovered/Resolved]
  - Malaise [Recovering/Resolving]
  - Mobility decreased [Unknown]
  - Drug ineffective for unapproved indication [Unknown]
  - Treatment noncompliance [Unknown]
  - Incorrect drug administration duration [Unknown]
  - Wrong technique in drug usage process [Unknown]
